FAERS Safety Report 16252519 (Version 1)
Quarter: 2019Q2

REPORT INFORMATION
  Report Type: Spontaneous
  Country: JP (occurrence: JP)
  Receive Date: 20190429
  Receipt Date: 20190429
  Transmission Date: 20190711
  Serious: Yes (Hospitalization)
  Sender: FDA-Public Use
  Company Number: JP-EISAI MEDICAL RESEARCH-EC-2019-055767

PATIENT
  Age: 75 Year
  Weight: 73 kg

DRUGS (2)
  1. AMDLODIPINE [Concomitant]
     Indication: HYPERTENSION
     Dosage: DOSE AND FREQUENCY UNKNOWN
     Route: 065
     Dates: start: 2013
  2. HALAVEN [Suspect]
     Active Substance: ERIBULIN MESYLATE
     Indication: BREAST CANCER RECURRENT
     Route: 041
     Dates: start: 20160705, end: 2016

REACTIONS (1)
  - Interstitial lung disease [Recovered/Resolved]

NARRATIVE: CASE EVENT DATE: 20161001
